FAERS Safety Report 6975209-3 (Version None)
Quarter: 2010Q3

REPORT INFORMATION
  Report Type: 
  Country: None (occurrence: None)
  Receive Date: 20100910
  Receipt Date: 20090216
  Transmission Date: 20110219
  Serious: No
  Sender: FDA-Public Use
  Company Number: US-WYE-H08203009

PATIENT
  Sex: Female

DRUGS (3)
  1. PRISTIQ [Suspect]
     Dosage: 50 MG, FREQUENCY UNKNOWN
     Route: 048
  2. EFFEXOR XR [Suspect]
     Dosage: 225 MG, FREQUENCY UNKNOWN
     Route: 048
  3. EFFEXOR XR [Suspect]
     Dosage: 225 MG, FREQUENCY UNKNOWN
     Route: 048
     Dates: start: 20090201

REACTIONS (5)
  - DEPRESSION [None]
  - DRUG INEFFECTIVE [None]
  - FATIGUE [None]
  - LOSS OF LIBIDO [None]
  - STRESS [None]
